FAERS Safety Report 4751012-X (Version None)
Quarter: 2005Q3

REPORT INFORMATION
  Report Type: 
  Country: None (occurrence: None)
  Receive Date: 20050824
  Receipt Date: 20050822
  Transmission Date: 20060218
  Serious: Yes (Life-Threatening, Hospitalization)
  Sender: FDA-Public Use
  Company Number: GB-BOEHRINGER INGELHEIM PHARMACEUTICALS, INC.-2005-UK-01574UK

PATIENT
  Age: 64 Year
  Sex: Male

DRUGS (8)
  1. MOBIC [Suspect]
     Indication: OSTEOARTHRITIS
     Dosage: 7.5 MG ONCE DAILY
     Route: 048
     Dates: end: 20050706
  2. ENALAPRIL [Suspect]
     Indication: BLOOD PRESSURE INCREASED
     Dosage: 40 MG ONCE DAILY
     Route: 048
     Dates: end: 20050706
  3. POTASSIUM CITRATE [Suspect]
     Indication: URINARY TRACT INFECTION
     Dosage: 10 ML THREE TIMES DAILY
     Route: 048
     Dates: start: 20050702, end: 20050706
  4. ATENOLOL [Concomitant]
     Indication: BLOOD PRESSURE INCREASED
     Dosage: 25 MG ONCE DAILY
     Route: 048
     Dates: start: 20050601
  5. ASPIRIN [Concomitant]
     Dosage: 75 MG ONCE DAILY
     Route: 048
  6. RANITIDINE [Concomitant]
     Dosage: 150 MG TWICE DAILY
     Route: 048
  7. TRAMADOL HCL [Concomitant]
     Dosage: 50 MG FOUR TIMES DAILY
     Route: 048
  8. SENNA [Concomitant]
     Dosage: 2 AT NIGHT
     Route: 048

REACTIONS (2)
  - DRUG INTERACTION [None]
  - RENAL FAILURE ACUTE [None]
